FAERS Safety Report 13410460 (Version 2)
Quarter: 2017Q4

REPORT INFORMATION
  Report Type: Spontaneous
  Country: US (occurrence: US)
  Receive Date: 20170406
  Receipt Date: 20171123
  Transmission Date: 20180320
  Serious: No
  Sender: FDA-Public Use
  Company Number: US-JNJFOC-20170226456

PATIENT
  Age: 15 Year
  Sex: Male

DRUGS (4)
  1. RISPERDAL [Suspect]
     Active Substance: RISPERIDONE
     Indication: ATTENTION DEFICIT/HYPERACTIVITY DISORDER
     Dosage: VARYING DOSES OF 0.5 AND 1 MG
     Route: 048
     Dates: start: 20050115, end: 20080623
  2. RISPERDAL [Suspect]
     Active Substance: RISPERIDONE
     Indication: EMOTIONAL DISORDER
     Dosage: VARYING DOSES OF 0.5 AND 1 MG
     Route: 048
     Dates: start: 20050115, end: 20080623
  3. RISPERDAL [Suspect]
     Active Substance: RISPERIDONE
     Indication: IMPULSIVE BEHAVIOUR
     Dosage: VARYING DOSES OF 0.5 AND 1 MG
     Route: 048
     Dates: start: 20050115, end: 20080623
  4. RISPERDAL [Suspect]
     Active Substance: RISPERIDONE
     Indication: OPPOSITIONAL DEFIANT DISORDER
     Dosage: VARYING DOSES OF 0.5 AND 1 MG
     Route: 048
     Dates: start: 20050115, end: 20080623

REACTIONS (4)
  - Off label use [Unknown]
  - Emotional disorder [Unknown]
  - Product use in unapproved indication [Unknown]
  - Gynaecomastia [Unknown]

NARRATIVE: CASE EVENT DATE: 20050115
